FAERS Safety Report 9118698 (Version 1)
Quarter: 2013Q1

REPORT INFORMATION
  Report Type: Spontaneous
  Country: BR (occurrence: BR)
  Receive Date: 20130226
  Receipt Date: 20130226
  Transmission Date: 20140127
  Serious: Yes (Other)
  Sender: FDA-Public Use
  Company Number: BR-PFIZER INC-2013067592

PATIENT
  Age: 67 Year
  Sex: Female
  Weight: 65 kg

DRUGS (4)
  1. CELEBRA [Suspect]
     Indication: PAIN
     Dosage: 200 MG, 2X/DAY
     Route: 048
     Dates: start: 20061207, end: 2012
  2. ATENOLOL [Concomitant]
     Indication: HYPERTENSION
     Dosage: ONE TABLET DAILY
  3. LOSARTAN [Concomitant]
     Indication: HYPERTENSION
     Dosage: ONE TABLET (70MG) DAILY
  4. OLCADIL [Concomitant]
     Indication: ANXIETY
     Dosage: ONE TABLET AS NEEDED

REACTIONS (3)
  - Hysterectomy [Unknown]
  - Drug ineffective [Unknown]
  - Fibromyalgia [Unknown]
